FAERS Safety Report 15499292 (Version 6)
Quarter: 2019Q1

REPORT INFORMATION
  Report Type: Spontaneous
  Country: US (occurrence: US)
  Receive Date: 20181015
  Receipt Date: 20190218
  Transmission Date: 20190417
  Serious: Yes (Death, Hospitalization, Other)
  Sender: FDA-Public Use
  Company Number: US-GLAXOSMITHKLINE-US2018GSK185280

PATIENT
  Age: 66 Year
  Sex: Female

DRUGS (7)
  1. COUMADIN [Concomitant]
     Active Substance: WARFARIN SODIUM
  2. FLOLAN [Suspect]
     Active Substance: EPOPROSTENOL SODIUM
     Dosage: 48 NG/KG/MIN, CO
     Route: 042
     Dates: start: 19991011
  3. FLOLAN [Suspect]
     Active Substance: EPOPROSTENOL SODIUM
     Indication: PULMONARY ARTERIAL HYPERTENSION
     Dosage: 50 DF, CO
     Route: 042
     Dates: start: 19991011
  4. OPSUMIT [Concomitant]
     Active Substance: MACITENTAN
  5. FLOLAN DILUENT PH 12 [Suspect]
     Active Substance: GLYCINE\MANNITOL\SODIUM CHLORIDE
     Indication: PULMONARY ARTERIAL HYPERTENSION
     Dosage: UNK
     Route: 042
     Dates: start: 20170630
  6. FLOLAN DILUENT PH 12 [Suspect]
     Active Substance: GLYCINE\MANNITOL\SODIUM CHLORIDE
     Dosage: UNK
     Route: 042
     Dates: start: 20170630
  7. FLOLAN [Suspect]
     Active Substance: EPOPROSTENOL SODIUM
     Dosage: 49 NG/KG/MIN, CO
     Route: 042
     Dates: start: 19991011

REACTIONS (9)
  - Systemic infection [Unknown]
  - Vascular device infection [Unknown]
  - Central venous catheterisation [Unknown]
  - Device dislocation [Unknown]
  - Catheter site bruise [Not Recovered/Not Resolved]
  - Pruritus [Unknown]
  - Death [Fatal]
  - Hospitalisation [Unknown]
  - Flushing [Unknown]

NARRATIVE: CASE EVENT DATE: 20181005
